FAERS Safety Report 26095924 (Version 1)
Quarter: 2025Q4

REPORT INFORMATION
  Report Type: Report from Study
  Country: CA (occurrence: CA)
  Receive Date: 20251127
  Receipt Date: 20251127
  Transmission Date: 20260118
  Serious: Yes (Other)
  Sender: TEVA
  Company Number: CA-TEVA-VS-3396670

PATIENT
  Sex: Male
  Weight: 80 kg

DRUGS (3)
  1. QUETIAPINE FUMARATE [Suspect]
     Active Substance: QUETIAPINE FUMARATE
     Indication: Sleep disorder
     Route: 065
  2. MELATONIN [Concomitant]
     Active Substance: MELATONIN
     Indication: Sleep disorder
     Dosage: DOSE FORM: NOT SPECIFIED
     Route: 065
  3. RENFLEXIS [Suspect]
     Active Substance: INFLIXIMAB-ABDA
     Indication: Crohn^s disease
     Dosage: RENFLEXIS SINGLE USE VIAL, DOSE FORM: POWDER FOR SOLUTION INTRAVENOUS
     Route: 042

REACTIONS (3)
  - Haematochezia [Recovered/Resolved]
  - Sleep disorder [Recovered/Resolved]
  - Off label use [Recovered/Resolved]
